FAERS Safety Report 25738659 (Version 1)
Quarter: 2025Q3

REPORT INFORMATION
  Report Type: Spontaneous
  Country: JP (occurrence: JP)
  Receive Date: 20250829
  Receipt Date: 20250829
  Transmission Date: 20251021
  Serious: Yes (Death, Hospitalization)
  Sender: BRISTOL-MYERS SQUIBB COMPANY
  Company Number: JP-BRISTOL-MYERS SQUIBB COMPANY-2025-117424

PATIENT
  Age: 8 Decade
  Sex: Male

DRUGS (1)
  1. REBLOZYL [Suspect]
     Active Substance: LUSPATERCEPT-AAMT
     Indication: Anaemia of malignant disease
     Route: 041
     Dates: start: 202506, end: 202508

REACTIONS (2)
  - Infection [Fatal]
  - Dehydration [Unknown]

NARRATIVE: CASE EVENT DATE: 20250801
